FAERS Safety Report 6915335-8 (Version None)
Quarter: 2010Q3

REPORT INFORMATION
  Report Type: 
  Country: None (occurrence: None)
  Receive Date: 20100809
  Receipt Date: 20091201
  Transmission Date: 20110219
  Serious: No
  Sender: FDA-Public Use
  Company Number: US-ABBOTT-09P-163-0612657-00

PATIENT
  Sex: Female
  Weight: 81.72 kg

DRUGS (7)
  1. DEPAKOTE ER [Suspect]
     Indication: DEPRESSION
     Route: 048
     Dates: start: 20080101, end: 20090701
  2. DEPAKOTE ER [Suspect]
     Route: 048
     Dates: start: 20090901
  3. ADDERALL 10 [Concomitant]
     Indication: ATTENTION DEFICIT/HYPERACTIVITY DISORDER
     Route: 048
  4. LUNESTA [Concomitant]
     Indication: INSOMNIA
     Route: 048
  5. LUVOX [Concomitant]
     Indication: DEPRESSION
     Route: 048
  6. XANAX [Concomitant]
     Indication: ANXIETY
     Route: 048
  7. FOLIC ACID [Concomitant]
     Indication: VITAMIN SUPPLEMENTATION
     Route: 048

REACTIONS (5)
  - APATHY [None]
  - DRUG INEFFECTIVE [None]
  - FATIGUE [None]
  - INCORRECT DRUG ADMINISTRATION DURATION [None]
  - MEMORY IMPAIRMENT [None]
